FAERS Safety Report 23576761 (Version 2)
Quarter: 2024Q2

REPORT INFORMATION
  Report Type: Spontaneous
  Country: US (occurrence: None)
  Receive Date: 20240228
  Receipt Date: 20240424
  Transmission Date: 20240716
  Serious: Yes (Other)
  Sender: FDA-Public Use
  Company Number: 2024A044973

PATIENT
  Age: 5 Year
  Sex: Male

DRUGS (5)
  1. SELUMETINIB [Suspect]
     Active Substance: SELUMETINIB
     Indication: Neurofibromatosis
     Route: 048
     Dates: start: 202101
  2. SELUMETINIB [Suspect]
     Active Substance: SELUMETINIB
     Indication: Neurofibroma
     Route: 048
     Dates: start: 202101
  3. IFOSFAMIDE [Concomitant]
     Active Substance: IFOSFAMIDE
  4. DOXORUBICIN [Concomitant]
     Active Substance: DOXORUBICIN
  5. PAZOPANIB [Concomitant]
     Active Substance: PAZOPANIB

REACTIONS (1)
  - Neurofibrosarcoma [Unknown]
